FAERS Safety Report 4700736-9 (Version None)
Quarter: 2005Q2

REPORT INFORMATION
  Report Type: 
  Country: None (occurrence: None)
  Receive Date: 20050627
  Receipt Date: 20050617
  Transmission Date: 20051028
  Serious: Yes (Hospitalization)
  Sender: FDA-Public Use
  Company Number: FR-ABBOTT-05P-056-0303520-00

PATIENT
  Age: 19 Year
  Sex: Female

DRUGS (7)
  1. DEPAKENE [Suspect]
     Indication: SUICIDE ATTEMPT
     Dosage: UNKNOWN QUANTITY ONCE
     Route: 048
     Dates: start: 20050524, end: 20050524
  2. DEPAKENE [Suspect]
     Indication: GRAND MAL CONVULSION
     Dates: start: 20010101, end: 20041201
  3. DONORMYL [Suspect]
     Indication: SUICIDE ATTEMPT
     Dosage: UNKNOWN QUANTITY ONCE
     Route: 048
     Dates: start: 20050524, end: 20050524
  4. DONORMYL [Suspect]
  5. MELATONIN [Suspect]
     Indication: SUICIDE ATTEMPT
     Dosage: UNKNOWN QUANTITY ONCE
     Route: 048
     Dates: start: 20050524, end: 20050524
  6. MELATONIN [Suspect]
  7. ETHANOL [Suspect]
     Indication: SUICIDE ATTEMPT
     Dosage: UNKNOWN QUANTITY ONCE
     Dates: start: 20050524, end: 20050524

REACTIONS (6)
  - ALANINE AMINOTRANSFERASE INCREASED [None]
  - ASPARTATE AMINOTRANSFERASE INCREASED [None]
  - DISORIENTATION [None]
  - INTENTIONAL MISUSE [None]
  - SOMNOLENCE [None]
  - SUICIDE ATTEMPT [None]
